FAERS Safety Report 18332436 (Version 4)
Quarter: 2020Q4

REPORT INFORMATION
  Report Type: Spontaneous
  Country: US (occurrence: US)
  Receive Date: 20200930
  Receipt Date: 20201120
  Transmission Date: 20210113
  Serious: Yes (Death, Hospitalization, Other)
  Sender: FDA-Public Use
  Company Number: US-JAZZ-2020-US-012627

PATIENT
  Age: 38 Year
  Sex: Female

DRUGS (3)
  1. ZEPZELCA [Suspect]
     Active Substance: LURBINECTEDIN
     Indication: SMALL CELL CARCINOMA
     Dosage: 3.2 MILLIGRAM/SQ. METER, QD
     Route: 042
     Dates: start: 20200821, end: 20200821
  2. ZOMETA [Concomitant]
     Active Substance: ZOLEDRONIC ACID
     Indication: HYPERCALCAEMIA OF MALIGNANCY
     Dosage: 4 MILLIGRAM, Q28D
     Route: 042
     Dates: start: 20200821, end: 20200821
  3. AKYNZEO [Concomitant]
     Active Substance: NETUPITANT\PALONOSETRON HYDROCHLORIDE
     Indication: PROPHYLAXIS OF NAUSEA AND VOMITING
     Dosage: 235-0.25 MILLIGRAM, QD
     Dates: start: 20200821, end: 20200821

REACTIONS (2)
  - Off label use [Unknown]
  - Tumour lysis syndrome [Fatal]

NARRATIVE: CASE EVENT DATE: 20200806
